FAERS Safety Report 9529595 (Version 1)
Quarter: 2013Q3

REPORT INFORMATION
  Report Type: Spontaneous
  Country: US (occurrence: US)
  Receive Date: 20130917
  Receipt Date: 20130917
  Transmission Date: 20140515
  Serious: Yes (Life-Threatening, Hospitalization)
  Sender: FDA-Public Use
  Company Number: 2013SP002682

PATIENT
  Age: 53 Year
  Sex: Female

DRUGS (3)
  1. XOPENEX [Suspect]
     Indication: ASTHMA
     Route: 055
     Dates: start: 20130914
  2. XOPENEX HFA [Suspect]
     Indication: ASTHMA
     Route: 055
     Dates: start: 2011, end: 2011
  3. CROMOLYN [Suspect]
     Indication: PRODUCT USED FOR UNKNOWN INDICATION

REACTIONS (6)
  - Renal failure acute [Recovered/Resolved]
  - Acute hepatic failure [Recovered/Resolved]
  - Abasia [Not Recovered/Not Resolved]
  - Fibromyalgia [Not Recovered/Not Resolved]
  - Anaphylactic reaction [Recovered/Resolved]
  - Pharyngeal oedema [Recovered/Resolved]
